FAERS Safety Report 5332602-2 (Version None)
Quarter: 2007Q2

REPORT INFORMATION
  Report Type: 
  Country: None (occurrence: None)
  Receive Date: 20070523
  Receipt Date: 20070510
  Transmission Date: 20071010
  Serious: No
  Sender: FDA-Public Use
  Company Number: US-ELI_LILLY_AND_COMPANY-US200705002854

PATIENT
  Age: 18 Year
  Sex: Female

DRUGS (3)
  1. CYMBALTA [Suspect]
     Indication: DEPRESSION
     Dosage: 60 MG, DAILY (1/D)
  2. STRATTERA [Suspect]
     Dosage: 80 MG, DAILY (1/D)
  3. SEROQUEL [Concomitant]
     Dosage: 100 MG, EACH EVENING

REACTIONS (1)
  - HEPATIC ENZYME INCREASED [None]
